FAERS Safety Report 15286346 (Version 1)
Quarter: 2018Q3

REPORT INFORMATION
  Report Type: Report from Study
  Country: DE (occurrence: DE)
  Receive Date: 20180816
  Receipt Date: 20180816
  Transmission Date: 20181010
  Serious: Yes (Hospitalization)
  Sender: FDA-Public Use
  Company Number: DE-PFIZER INC-2018322570

PATIENT
  Age: 16 Year
  Sex: Male
  Weight: 69.2 kg

DRUGS (6)
  1. ROACTEMRA [Suspect]
     Active Substance: TOCILIZUMAB
     Indication: STILL^S DISEASE
     Dosage: DAILY DOSE: 600 MG MILLGRAM(S) EVERY 2 WEEKS
     Route: 042
     Dates: start: 20111217, end: 20170531
  2. METHOTREXATE SODIUM. [Suspect]
     Active Substance: METHOTREXATE SODIUM
     Dosage: DAILY DOSE: 12.5 MG MILLGRAM(S) EVERY WEEKS
     Route: 048
     Dates: start: 20090303
  3. PREDNISON [Suspect]
     Active Substance: PREDNISONE
     Indication: STILL^S DISEASE
     Dosage: DAILY DOSE: 5 MG MILLGRAM(S) EVERY DAYS
     Route: 048
     Dates: start: 20111217
  4. PANTOZOL [Concomitant]
     Active Substance: PANTOPRAZOLE SODIUM
     Dosage: 80 MG, UNK
     Route: 065
     Dates: start: 201705
  5. DIPYRONE [Concomitant]
     Active Substance: DIPYRONE
     Indication: STILL^S DISEASE
     Dosage: DAILY DOSE: 1500 MG MILLGRAM(S) EVERY DAYS
     Route: 048
     Dates: start: 20160628
  6. ETORICOXIB. [Concomitant]
     Active Substance: ETORICOXIB
     Indication: STILL^S DISEASE
     Dosage: DAILY DOSE: 180 MG MILLGRAM(S) EVERY DAYS
     Route: 048
     Dates: start: 20160120

REACTIONS (2)
  - Pain in extremity [Recovered/Resolved]
  - Back pain [Recovered/Resolved]

NARRATIVE: CASE EVENT DATE: 20170612
